FAERS Safety Report 11283454 (Version 1)
Quarter: 2015Q3

REPORT INFORMATION
  Report Type: Report from Study
  Country: US (occurrence: US)
  Receive Date: 20150720
  Receipt Date: 20150720
  Transmission Date: 20151125
  Serious: Yes (Hospitalization)
  Sender: FDA-Public Use
  Company Number: US-TAKEDA-2015MPI004705

PATIENT
  Age: 75 Year
  Sex: Male
  Weight: 79.36 kg

DRUGS (2)
  1. TEMOZOLOMIDE. [Suspect]
     Active Substance: TEMOZOLOMIDE
     Indication: GLIOBLASTOMA MULTIFORME
     Dosage: 75 MG/M2, QD
     Route: 048
     Dates: start: 20150625, end: 20150629
  2. VELCADE [Suspect]
     Active Substance: BORTEZOMIB
     Indication: GLIOBLASTOMA MULTIFORME
     Dosage: 1.3 MG/M2, 2/WEEK
     Route: 058
     Dates: start: 20150625, end: 20150706

REACTIONS (1)
  - Platelet count abnormal [Unknown]

NARRATIVE: CASE EVENT DATE: 20150710
